FAERS Safety Report 5383404-2 (Version None)
Quarter: 2007Q3

REPORT INFORMATION
  Report Type: 
  Country: None (occurrence: None)
  Receive Date: 20070710
  Receipt Date: 20070703
  Transmission Date: 20080115
  Serious: Yes (Other)
  Sender: FDA-Public Use
  Company Number: JP-PFIZER INC-2007054737

PATIENT
  Age: 14 Year
  Sex: Female

DRUGS (1)
  1. SOLANAX [Suspect]
     Route: 048

REACTIONS (2)
  - APNOEA [None]
  - HYPERVENTILATION [None]
